FAERS Safety Report 9187497 (Version 1)
Quarter: 2013Q1

REPORT INFORMATION
  Report Type: Spontaneous
  Country: FR (occurrence: FR)
  Receive Date: 20130325
  Receipt Date: 20130325
  Transmission Date: 20140127
  Serious: Yes (Hospitalization)
  Sender: FDA-Public Use
  Company Number: FR-TEVA-394104USA

PATIENT
  Age: 72 Year
  Sex: Male
  Weight: 90 kg

DRUGS (7)
  1. BENDAMUSTINE [Suspect]
     Indication: NODAL MARGINAL ZONE B-CELL LYMPHOMA
     Dosage: REGIMEN #1
     Route: 041
     Dates: start: 20121112, end: 20130114
  2. MABTHERA [Suspect]
     Indication: NODAL MARGINAL ZONE B-CELL LYMPHOMA
     Dosage: REGIMEN #1
     Route: 042
     Dates: start: 20121112, end: 20130113
  3. CIFLOX [Suspect]
     Indication: SEPSIS
     Dosage: REGIMEN #1
     Route: 048
     Dates: start: 20130114, end: 20130114
  4. METHYLPREDNISOLONE [Suspect]
     Dosage: REGIMEN #1
     Dates: start: 20121112
  5. LEVOTHYROXINE [Concomitant]
  6. NAABAK [Concomitant]
  7. HYLO-VISION 4.9 PERCENT [Concomitant]
     Dosage: .9 PERCENT DAILY;

REACTIONS (3)
  - Rash [Recovered/Resolved]
  - Henoch-Schonlein purpura [Recovering/Resolving]
  - Pyrexia [Recovered/Resolved]
